FAERS Safety Report 18951214 (Version 1)
Quarter: 2021Q1

REPORT INFORMATION
  Report Type: Other
  Country: CN (occurrence: CN)
  Receive Date: 20210228
  Receipt Date: 20210228
  Transmission Date: 20210420
  Serious: Yes (Hospitalization)
  Sender: FDA-Public Use
  Company Number: CN-B.BRAUN MEDICAL INC.-2107416

PATIENT
  Age: 45 Year
  Sex: Male

DRUGS (2)
  1. FUROSEMIDE. [Concomitant]
     Active Substance: FUROSEMIDE
  2. 20% MANNITOL INJECTION USP 0264?7578?10 0264?7578?20 [Suspect]
     Active Substance: MANNITOL
     Indication: INTRACRANIAL PRESSURE INCREASED

REACTIONS (1)
  - Drug ineffective [None]
